FAERS Safety Report 9391605 (Version 1)
Quarter: 2013Q3

REPORT INFORMATION
  Report Type: Spontaneous
  Country: US (occurrence: None)
  Receive Date: 20130705
  Receipt Date: 20130705
  Transmission Date: 20140515
  Serious: Yes (Hospitalization)
  Sender: FDA-Public Use
  Company Number: NSR_01173_2013

PATIENT
  Age: 17 Year
  Sex: Female

DRUGS (2)
  1. BACLOFEN [Suspect]
     Indication: MUSCLE SPASTICITY
     Route: 048
  2. BOTULINUM TOXIN [Concomitant]

REACTIONS (15)
  - Abnormal behaviour [None]
  - Insomnia [None]
  - Hallucinations, mixed [None]
  - Delusion [None]
  - Homicidal ideation [None]
  - Heart rate increased [None]
  - Joint contracture [None]
  - Pressure of speech [None]
  - Screaming [None]
  - Thinking abnormal [None]
  - Psychotic disorder [None]
  - Major depression [None]
  - Bipolar I disorder [None]
  - Affective disorder [None]
  - Drug withdrawal syndrome [None]
